FAERS Safety Report 6882375-7 (Version None)
Quarter: 2010Q3

REPORT INFORMATION
  Report Type: 
  Country: None (occurrence: None)
  Receive Date: 20100728
  Receipt Date: 20100728
  Transmission Date: 20110219
  Serious: Yes (Hospitalization)
  Sender: FDA-Public Use
  Company Number: None

PATIENT
  Age: 59 Year
  Sex: Male
  Weight: 101.3 kg

DRUGS (1)
  1. LIDOCAINE [Suspect]
     Dates: start: 20100413, end: 20100413

REACTIONS (1)
  - ANAPHYLACTIC REACTION [None]
